FAERS Safety Report 9483244 (Version 1)
Quarter: 2013Q3

REPORT INFORMATION
  Report Type: Spontaneous
  Country: US (occurrence: US)
  Receive Date: 20130828
  Receipt Date: 20130828
  Transmission Date: 20140515
  Serious: Yes (Other)
  Sender: FDA-Public Use
  Company Number: US-AMGEN-KDL245454

PATIENT
  Sex: Female

DRUGS (3)
  1. ENBREL [Suspect]
     Indication: RHEUMATOID ARTHRITIS
     Dosage: 50 MG, 2 TIMES/WK
     Route: 058
     Dates: start: 20040812, end: 20070201
  2. HYDROXYCHLOROQUINE SULFATE [Concomitant]
     Dosage: UNK UNK, UNK
     Dates: start: 2004
  3. LEFLUNOMIDE [Concomitant]
     Dosage: UNK UNK, UNK
     Dates: start: 2006

REACTIONS (2)
  - Systemic lupus erythematosus [Unknown]
  - Drug ineffective [Not Recovered/Not Resolved]
